FAERS Safety Report 17631781 (Version 3)
Quarter: 2020Q2

REPORT INFORMATION
  Report Type: Spontaneous
  Country: LB (occurrence: LB)
  Receive Date: 20200406
  Receipt Date: 20200430
  Transmission Date: 20200713
  Serious: No
  Sender: FDA-Public Use
  Company Number: LB-JNJFOC-20200343088

PATIENT
  Age: 3 Year
  Sex: Female

DRUGS (2)
  1. DUROGESIC [Suspect]
     Active Substance: FENTANYL
     Indication: PAIN
     Dosage: 25MCG/H AND 50MCG/H
     Route: 062
  2. KETAMINE [Concomitant]
     Active Substance: KETAMINE
     Dosage: STARTED 2 YEARS AGO
     Route: 065

REACTIONS (5)
  - Inappropriate schedule of product administration [Unknown]
  - Hypersensitivity [Unknown]
  - Off label use [Unknown]
  - Product complaint [Unknown]
  - Drug ineffective [Unknown]

NARRATIVE: CASE EVENT DATE: 202002
